FAERS Safety Report 5284087-2 (Version None)
Quarter: 2007Q1

REPORT INFORMATION
  Report Type: 
  Country: None (occurrence: None)
  Receive Date: 20070327
  Receipt Date: 20070319
  Transmission Date: 20070707
  Serious: Yes (Hospitalization, Other)
  Sender: FDA-Public Use
  Company Number: 163-20785-07030558

PATIENT
  Age: 62 Year
  Sex: Male
  Weight: 84.369 kg

DRUGS (15)
  1. THALOMID [Suspect]
     Indication: PROSTATE CANCER
     Dosage: 100 MG, 1 IN 1 D, ORAL
     Route: 048
     Dates: start: 20070206, end: 20070201
  2. GLEEVEC [Suspect]
     Indication: PROSTATE CANCER
  3. ALBUTEROL (SALBUTAMOL) (INHALANT) [Concomitant]
  4. ASA (ACETYLSALICYLIC ACID) (TABLETS) [Concomitant]
  5. CARISOPRODOL (CARISOPRODOL) (TABLETS) [Concomitant]
  6. DIAZEPAM (DIAZEPAM) (TABLETS) [Concomitant]
  7. GUAIFENESIN (GUAIFENESIN) (LIQUID) [Concomitant]
  8. HYDROCODONE (HYDROCODONE) (TABLETS) [Concomitant]
  9. LITHIUM (LITHIUM) (TABLETS) [Concomitant]
  10. PREDNISONE [Concomitant]
  11. MOXIFLOXACIN HCL [Concomitant]
  12. PROCHLORPERAZINE MALEATE [Concomitant]
  13. RISPERIDONE [Concomitant]
  14. SENNOSIDES (SENNOSIDE A+B CALCIUM) (TABLETS) [Concomitant]
  15. WARFARIN SODIUM [Concomitant]

REACTIONS (10)
  - ARACHNOID CYST [None]
  - ASTHENIA [None]
  - BRONCHITIS [None]
  - DECREASED APPETITE [None]
  - DYSARTHRIA [None]
  - FALL [None]
  - HEADACHE [None]
  - NEUROLOGICAL SYMPTOM [None]
  - NUCLEAR MAGNETIC RESONANCE IMAGING BRAIN ABNORMAL [None]
  - PAIN [None]
